FAERS Safety Report 16529579 (Version 2)
Quarter: 2019Q3

REPORT INFORMATION
  Report Type: Spontaneous
  Country: CO (occurrence: CO)
  Receive Date: 20190703
  Receipt Date: 20190712
  Transmission Date: 20191004
  Serious: Yes (Death, Hospitalization)
  Sender: FDA-Public Use
  Company Number: CO-BAXTER-2019BAX012916

PATIENT
  Age: 69 Year
  Sex: Female

DRUGS (2)
  1. DIANEAL PD-2 WITH DEXTROSE [Suspect]
     Active Substance: CALCIUM CHLORIDE\DEXTROSE\MAGNESIUM CHLORIDE\SODIUM CHLORIDE\SODIUM LACTATE
     Indication: PERITONEAL DIALYSIS
     Dosage: 1 BAG PER DAY
     Route: 033
     Dates: start: 2015
  2. DIANEAL PD-2 WITH DEXTROSE [Suspect]
     Active Substance: CALCIUM CHLORIDE\DEXTROSE\MAGNESIUM CHLORIDE\SODIUM CHLORIDE\SODIUM LACTATE
     Indication: CHRONIC KIDNEY DISEASE
     Dosage: 1 BAG PER DAY
     Route: 033
     Dates: start: 2015

REACTIONS (5)
  - Thrombosis [Unknown]
  - Cerebrovascular accident [Not Recovered/Not Resolved]
  - Brain death [Fatal]
  - Loss of consciousness [Not Recovered/Not Resolved]
  - Respiratory arrest [Unknown]

NARRATIVE: CASE EVENT DATE: 201906
